FAERS Safety Report 23879599 (Version 2)
Quarter: 2024Q3

REPORT INFORMATION
  Report Type: Spontaneous
  Country: US (occurrence: US)
  Receive Date: 20240521
  Receipt Date: 20240725
  Transmission Date: 20241017
  Serious: No
  Sender: TEVA
  Company Number: US-TEVA-VS-3195571

PATIENT
  Age: 84 Year
  Sex: Female

DRUGS (5)
  1. AUSTEDO [Suspect]
     Active Substance: DEUTETRABENAZINE
     Indication: Huntington^s disease
     Route: 065
  2. AUSTEDO [Suspect]
     Active Substance: DEUTETRABENAZINE
     Indication: Huntington^s disease
     Route: 065
  3. AUSTEDO [Suspect]
     Active Substance: DEUTETRABENAZINE
     Indication: Huntington^s disease
     Dosage: 1(6MG) TWICE DAILY WITH 1(9MG) TWICE DAILY
     Route: 065
     Dates: start: 20240402
  4. AUSTEDO [Suspect]
     Active Substance: DEUTETRABENAZINE
     Indication: Huntington^s disease
     Dosage: 1(6MG) TWICE DAILY WITH 1(9MG) TWICE DAILY
     Route: 065
     Dates: start: 20240402
  5. AUSTEDO [Suspect]
     Active Substance: DEUTETRABENAZINE
     Indication: Huntington^s disease
     Route: 065

REACTIONS (1)
  - Drug ineffective [Unknown]
